FAERS Safety Report 4548487-8 (Version None)
Quarter: 2004Q4

REPORT INFORMATION
  Report Type: 
  Country: None (occurrence: None)
  Receive Date: 20041227
  Receipt Date: 20041105
  Transmission Date: 20050328
  Serious: Yes (Hospitalization)
  Sender: FDA-Public Use
  Company Number: 04P-163-0279907-00

PATIENT
  Age: 83 Year
  Sex: Female
  Weight: 73.4827 kg

DRUGS (5)
  1. HUMIRA [Suspect]
     Indication: RHEUMATOID ARTHRITIS
     Dosage: 40 MG, 1 IN 2 WK, SUBCUTANEOUS
     Route: 058
     Dates: start: 20040101, end: 20041018
  2. PREDNISONE [Concomitant]
  3. UNSPECIFIED MEDICATION [Concomitant]
  4. FUROSEMIDE [Concomitant]
  5. UNSPECIFIED PILL [Concomitant]

REACTIONS (5)
  - BACK PAIN [None]
  - INJECTION SITE THROMBOSIS [None]
  - INJECTION SITE URTICARIA [None]
  - THROMBOSIS [None]
  - URTICARIA [None]
